FAERS Safety Report 5957803-1 (Version None)
Quarter: 2008Q4

REPORT INFORMATION
  Report Type: 
  Country: None (occurrence: None)
  Receive Date: 20081119
  Receipt Date: 20081113
  Transmission Date: 20090506
  Serious: Yes (Hospitalization, Other)
  Sender: FDA-Public Use
  Company Number: GB-ASTRAZENECA-2007AP04860

PATIENT
  Age: 792 Month
  Sex: Female

DRUGS (8)
  1. ARIMIDEX [Suspect]
     Indication: PROPHYLAXIS
     Route: 048
     Dates: start: 20060504
  2. ARIMIDEX [Suspect]
     Route: 048
  3. ATORVASTATIN CALCIUM [Concomitant]
  4. BECONASE [Concomitant]
     Route: 055
  5. PULMICORT-100 [Concomitant]
     Route: 055
  6. ALBUTEROL SULFATE [Concomitant]
     Route: 055
  7. METFORMIN HCL [Concomitant]
  8. ASPIRIN [Concomitant]

REACTIONS (2)
  - FALL [None]
  - SPINAL FRACTURE [None]
